FAERS Safety Report 7691908-2 (Version None)
Quarter: 2011Q3

REPORT INFORMATION
  Report Type: 
  Country: None (occurrence: None)
  Receive Date: 20110818
  Receipt Date: 20110809
  Transmission Date: 20111222
  Serious: Yes (Other)
  Sender: FDA-Public Use
  Company Number: US-ASTRAZENECA-2011SE47511

PATIENT
  Sex: Female

DRUGS (3)
  1. SEROQUEL [Suspect]
     Indication: INSOMNIA
     Route: 048
     Dates: start: 20050101, end: 20110101
  2. SEROQUEL [Suspect]
     Route: 048
     Dates: start: 20110101
  3. OMEPRAZOLE [Concomitant]

REACTIONS (2)
  - TENDON RUPTURE [None]
  - OFF LABEL USE [None]
